FAERS Safety Report 24649539 (Version 1)
Quarter: 2024Q4

REPORT INFORMATION
  Report Type: Spontaneous
  Country: US (occurrence: US)
  Receive Date: 20241121
  Receipt Date: 20241121
  Transmission Date: 20250114
  Serious: No
  Sender: MERCK
  Company Number: US-009507513-2411USA006777

PATIENT
  Age: 57 Year
  Sex: Female

DRUGS (1)
  1. WINREVAIR [Suspect]
     Active Substance: SOTATERCEPT-CSRK
     Indication: Pulmonary arterial hypertension
     Dosage: 0.7 MILLIGRAM/KILOGRAM, Q3W
     Route: 058
     Dates: start: 20240927

REACTIONS (4)
  - Drug hypersensitivity [Recovered/Resolved]
  - Orbital swelling [Recovered/Resolved]
  - Face oedema [Recovered/Resolved]
  - Conjunctival irritation [Unknown]

NARRATIVE: CASE EVENT DATE: 20240101
